FAERS Safety Report 6943627-5 (Version None)
Quarter: 2010Q3

REPORT INFORMATION
  Report Type: 
  Country: None (occurrence: None)
  Receive Date: 20100826
  Receipt Date: 20100813
  Transmission Date: 20110219
  Serious: Yes (Life-Threatening, Hospitalization, Other)
  Sender: FDA-Public Use
  Company Number: PHEH2008US05593

PATIENT
  Sex: Male
  Weight: 58.5 kg

DRUGS (51)
  1. ZOMETA [Suspect]
     Dosage: 4 MG, UNK
     Route: 042
  2. THEOPHYLLINE [Concomitant]
     Dosage: 300 MG TABLETS
  3. FLOVENT [Concomitant]
     Dosage: 11O MCG
  4. CELEBREX [Concomitant]
     Dosage: 200 MG CAPSULES
  5. WARFARIN SODIUM [Concomitant]
     Dosage: 5 MG TABLETS
  6. PRAVACHOL [Concomitant]
     Dosage: 80 MG TABLETS
  7. ALBUTEROL [Concomitant]
     Dosage: 90 MCG, TWO PUFFS FOUR TIMES A DAY
  8. ATROVENT [Concomitant]
     Dosage: TWO PUFFS FOUR TIMES A DAY
  9. CIMETIDINE [Concomitant]
     Dosage: 300 MG, PRN
  10. DEXAMETHASONE [Concomitant]
     Dosage: 4 MG TABLETS
  11. DEXAMETHASONE [Concomitant]
     Dosage: 14 MG A DAY
  12. VIOXX [Concomitant]
     Dosage: 50 MG TABLETS
  13. PREDNISONE [Concomitant]
     Dosage: UNK
  14. BUSPAR [Concomitant]
     Dosage: UNK
  15. ZOCOR [Concomitant]
     Dosage: UNK
  16. ARANESP [Concomitant]
     Dosage: UNK
  17. OXYCONTIN [Concomitant]
     Dosage: 20 MG, BID
  18. THALIDOMIDE [Concomitant]
     Dosage: UNK
  19. THALIDOMIDE [Concomitant]
     Dosage: 100 MG, 1 CAPSULE DAILY
     Dates: end: 20080601
  20. RADIATION THERAPY [Concomitant]
     Dosage: UNK
  21. COLACE [Concomitant]
     Dosage: UNK
  22. LORTAB [Concomitant]
  23. SORBITOL [Concomitant]
  24. TAGAMET [Concomitant]
     Dosage: 300 MG, QD
  25. ZANTAC [Concomitant]
  26. FOSAMAX [Concomitant]
  27. NICOTINE [Concomitant]
  28. OXYGEN THERAPY [Concomitant]
     Dosage: TWO AND A HALF LITERS PER MINUTE
  29. OXYGEN THERAPY [Concomitant]
     Dosage: THREE LITERS PER MINUTE AT NIGHT
  30. DECADRON [Concomitant]
  31. VELCADE [Concomitant]
  32. SENOKOT                                 /UNK/ [Concomitant]
  33. HYDROCODONE BITARTRATE [Concomitant]
  34. OS-CAL [Concomitant]
  35. MORPHINE [Concomitant]
     Dosage: 1
  36. MORPHINE [Concomitant]
     Dosage: 15 MG, TID
  37. MORPHINE [Concomitant]
     Dosage: 15 MG, QD
  38. VENTOLIN [Concomitant]
     Dosage: TWO PUFFS QID
  39. DOXYCYCLINE [Concomitant]
     Dosage: ONE PER DAY
  40. ATENOLOL [Concomitant]
  41. MULTI-VITAMINS [Concomitant]
  42. ENSURE [Concomitant]
     Dosage: THREE BOTLES A DAY
  43. MS CONTIN [Concomitant]
  44. AMBIEN [Concomitant]
  45. KEFZOL [Concomitant]
  46. ANESTHETICS [Concomitant]
  47. LOPRESSOR [Concomitant]
  48. STOOL SOFTENER [Concomitant]
     Dosage: AS NEEDED
  49. OXYCODONE HCL [Concomitant]
     Dosage: 5 MG, PRN
  50. ORAJEL [Concomitant]
     Dosage: PRN
  51. STEROIDS NOS [Concomitant]

REACTIONS (100)
  - ABDOMINAL DISTENSION [None]
  - ABDOMINAL PAIN [None]
  - ABSCESS ORAL [None]
  - ALCOHOL POISONING [None]
  - ANHEDONIA [None]
  - ANXIETY [None]
  - ARTHRITIS [None]
  - ASTHMA [None]
  - ATELECTASIS [None]
  - BETA 2 MICROGLOBULIN INCREASED [None]
  - BLOOD PRESSURE DECREASED [None]
  - BONE DISORDER [None]
  - BONE OPERATION [None]
  - BRONCHITIS [None]
  - BURSITIS [None]
  - CARDIOVASCULAR DISORDER [None]
  - CATARACT [None]
  - CHEST PAIN [None]
  - CHEST TUBE INSERTION [None]
  - CONSTIPATION [None]
  - COUGH [None]
  - DECREASED ACTIVITY [None]
  - DENTAL CARIES [None]
  - DIZZINESS [None]
  - DYSPNOEA [None]
  - EDENTULOUS [None]
  - ENTEROCUTANEOUS FISTULA [None]
  - FATIGUE [None]
  - FISTULA DISCHARGE [None]
  - FLANK PAIN [None]
  - GINGIVAL BLEEDING [None]
  - GINGIVAL PAIN [None]
  - HAEMOPHILUS INFECTION [None]
  - HAEMOPTYSIS [None]
  - HEART RATE INCREASED [None]
  - HIATUS HERNIA [None]
  - HUNGER [None]
  - HYPERCALCAEMIA [None]
  - HYPERCHOLESTEROLAEMIA [None]
  - HYPERTENSION [None]
  - HYPOTENSION [None]
  - IMMUNOGLOBULINS INCREASED [None]
  - INFECTIVE EXACERBATION OF CHRONIC OBSTRUCTIVE AIRWAYS DISEASE [None]
  - INGUINAL HERNIA [None]
  - INGUINAL HERNIA REPAIR [None]
  - INJURY [None]
  - INTERSTITIAL LUNG DISEASE [None]
  - LEFT VENTRICULAR HYPERTROPHY [None]
  - LEUKOCYTOSIS [None]
  - LUNG DISORDER [None]
  - MASS [None]
  - MASTICATION DISORDER [None]
  - METASTASES TO BONE [None]
  - MITRAL VALVE INCOMPETENCE [None]
  - MONOCLONAL GAMMOPATHY [None]
  - MULTIPLE MYELOMA [None]
  - MUSCLE STRAIN [None]
  - MUSCULOSKELETAL CHEST PAIN [None]
  - NASOPHARYNGITIS [None]
  - NAUSEA [None]
  - NECK INJURY [None]
  - NECK PAIN [None]
  - NEPHROLITHIASIS [None]
  - OEDEMA MOUTH [None]
  - OSTEONECROSIS OF JAW [None]
  - OSTEOPOROSIS [None]
  - PAIN [None]
  - PAIN IN JAW [None]
  - PLASMACYTOMA [None]
  - PLEURAL EFFUSION [None]
  - PNEUMONIA [None]
  - PNEUMOTHORAX SPONTANEOUS TENSION [None]
  - PROCTITIS [None]
  - PRODUCTIVE COUGH [None]
  - PROTEUS INFECTION [None]
  - PROTHROMBIN TIME PROLONGED [None]
  - PULMONARY HILUM MASS [None]
  - PULMONARY OEDEMA [None]
  - RECTAL HAEMORRHAGE [None]
  - RENAL CYST [None]
  - RESPIRATORY FAILURE [None]
  - RESPIRATORY RATE INCREASED [None]
  - RESUSCITATION [None]
  - RHONCHI [None]
  - RIB FRACTURE [None]
  - ROTATOR CUFF SYNDROME [None]
  - SPINAL COMPRESSION FRACTURE [None]
  - SPINAL CORPECTOMY [None]
  - SPINAL DISORDER [None]
  - SPINAL FUSION SURGERY [None]
  - SPINAL OSTEOARTHRITIS [None]
  - STAPHYLOCOCCAL INFECTION [None]
  - SUBCUTANEOUS EMPHYSEMA [None]
  - SURGERY [None]
  - TENDERNESS [None]
  - TINNITUS [None]
  - TOOTH EXTRACTION [None]
  - ULCER [None]
  - UPPER RESPIRATORY TRACT INFECTION [None]
  - VOMITING [None]
